FAERS Safety Report 5174097-8 (Version None)
Quarter: 2006Q4

REPORT INFORMATION
  Report Type: 
  Country: None (occurrence: None)
  Receive Date: 20061214
  Receipt Date: 20060602
  Transmission Date: 20070319
  Serious: Yes (Other)
  Sender: FDA-Public Use
  Company Number: PHBS2006BR08385

PATIENT
  Age: 38 Year
  Sex: Female
  Weight: 75 kg

DRUGS (6)
  1. DESOBESI-M [Concomitant]
     Dosage: 25 MG/D
     Route: 048
  2. CERAZETTE [Concomitant]
     Indication: CONTRACEPTION
     Dosage: 75 UG, QD
     Route: 048
     Dates: start: 20060602
  3. LUDIOMIL [Suspect]
     Indication: DEPRESSION
     Dosage: 50 MG/D
     Route: 048
  4. LUDIOMIL [Suspect]
     Dosage: 25 MG, QHS
     Route: 048
  5. OLCADIL [Suspect]
     Indication: SLEEP DISORDER
     Dosage: 2 MG, QHS
     Route: 048
  6. OLCADIL [Suspect]
     Dosage: 8 MG, QHS
     Route: 048
     Dates: start: 20060601, end: 20060601

REACTIONS (6)
  - DYSPNOEA [None]
  - INSOMNIA [None]
  - METRORRHAGIA [None]
  - OEDEMA [None]
  - PANIC REACTION [None]
  - WEIGHT INCREASED [None]
